FAERS Safety Report 7656794-5 (Version None)
Quarter: 2011Q3

REPORT INFORMATION
  Report Type: 
  Country: None (occurrence: None)
  Receive Date: 20110804
  Receipt Date: 20110802
  Transmission Date: 20111222
  Serious: Yes (Life-Threatening)
  Sender: FDA-Public Use
  Company Number: PHHY2011GB69505

PATIENT
  Age: 75 Year
  Sex: Female

DRUGS (12)
  1. FENTANYL [Interacting]
     Indication: PAIN
     Dosage: 87 UG, UNK
     Route: 062
     Dates: end: 20110501
  2. AMITRIPTYLINE HCL [Concomitant]
  3. ACETAMINOPHEN [Concomitant]
  4. TAMOXIFEN CITRATE [Concomitant]
  5. CANDESARTAN CILEXETIL [Concomitant]
  6. DOXAZOSIN MESYLATE [Concomitant]
  7. DOCUSATE SODIUM [Concomitant]
  8. DEXAMETHASONE [Concomitant]
  9. ZOPICLONE [Concomitant]
  10. IBUPROFEN [Concomitant]
  11. SEVELAMER [Concomitant]
  12. CLARITHROMYCIN [Suspect]
     Indication: LOWER RESPIRATORY TRACT INFECTION
     Dosage: 500 MG, BID
     Route: 048
     Dates: start: 20110501, end: 20110501

REACTIONS (2)
  - RESPIRATORY ARREST [None]
  - DRUG INTERACTION [None]
